FAERS Safety Report 19894374 (Version 1)
Quarter: 2021Q3

REPORT INFORMATION
  Report Type: Spontaneous
  Country: IT (occurrence: IT)
  Receive Date: 20210929
  Receipt Date: 20210929
  Transmission Date: 20211014
  Serious: Yes (Hospitalization)
  Sender: FDA-Public Use
  Company Number: IT-AUROBINDO-AUR-APL-2021-039659

PATIENT
  Age: 73 Year
  Sex: Female

DRUGS (6)
  1. RITUXIMAB. [Suspect]
     Active Substance: RITUXIMAB
     Indication: GRANULOMATOSIS WITH POLYANGIITIS
     Dosage: MAINTENANCE THERAPY? 500 MG FIXED SIX MONTH DOSE
     Route: 065
     Dates: start: 201710, end: 20201109
  2. PIPERACILLIN AND TAZOBACTAM [Suspect]
     Active Substance: PIPERACILLIN SODIUM\TAZOBACTAM SODIUM
     Indication: COVID-19
     Dosage: UNK
     Route: 065
  3. CYCLOPHOSPHAMIDE. [Suspect]
     Active Substance: CYCLOPHOSPHAMIDE
     Indication: GRANULOMATOSIS WITH POLYANGIITIS
     Dosage: CUMULATIVE DOSE OF 12 G
     Route: 065
     Dates: start: 201609, end: 201709
  4. ENOXAPARIN [Suspect]
     Active Substance: ENOXAPARIN
     Indication: COVID-19
     Dosage: UNK
     Route: 065
  5. PREDNISONE. [Suspect]
     Active Substance: PREDNISONE
     Indication: GRANULOMATOSIS WITH POLYANGIITIS
     Dosage: 2.5 MILLIGRAM, ONCE A DAY
     Route: 065
  6. RITUXIMAB. [Suspect]
     Active Substance: RITUXIMAB
     Dosage: INDUCTION THERAPY
     Route: 065

REACTIONS (4)
  - Respiratory failure [Unknown]
  - COVID-19 [Unknown]
  - Off label use [Unknown]
  - Drug ineffective for unapproved indication [Unknown]
